FAERS Safety Report 4553697-X (Version None)
Quarter: 2005Q1

REPORT INFORMATION
  Report Type: 
  Country: None (occurrence: None)
  Receive Date: 20041230
  Receipt Date: 20040723
  Transmission Date: 20050727
  Serious: Yes (Other)
  Sender: FDA-Public Use
  Company Number: 04-07-1064

PATIENT
  Age: 51 Year
  Sex: Male

DRUGS (2)
  1. CLOZAPINE [Suspect]
     Dosage: 525MG QD ORAL
     Route: 048
     Dates: start: 19981101
  2. IMURAN [Suspect]
     Dates: start: 20040616

REACTIONS (2)
  - LEUKOPENIA [None]
  - NEUTROPENIA [None]
